FAERS Safety Report 9739518 (Version 1)
Quarter: 2013Q4

REPORT INFORMATION
  Report Type: Spontaneous
  Country: FR (occurrence: FR)
  Receive Date: 20131209
  Receipt Date: 20131209
  Transmission Date: 20140711
  Serious: Yes (Death)
  Sender: FDA-Public Use
  Company Number: FR-B.I. PHARMACEUTICALS,INC./RIDGEFIELD-2013-BI-40781FF

PATIENT
  Age: 33 Year
  Sex: Male
  Weight: 53 kg

DRUGS (16)
  1. VIRAMUNE [Suspect]
     Indication: HIV TEST POSITIVE
     Route: 048
     Dates: start: 20130703, end: 20130716
  2. METHOTREXATE [Suspect]
     Indication: CENTRAL NERVOUS SYSTEM LYMPHOMA
     Route: 042
     Dates: start: 20130705, end: 20130711
  3. LOVENOX [Suspect]
     Dosage: 0.4 MG
     Route: 058
     Dates: start: 20130627, end: 20130715
  4. KEPPRA [Suspect]
     Indication: EPILEPSY
     Dosage: 2 ANZ
     Route: 042
     Dates: start: 20130702, end: 20130716
  5. WELLVONE [Suspect]
     Indication: PNEUMOCYSTIS JIROVECII PNEUMONIA
     Route: 048
     Dates: start: 20130620, end: 20130716
  6. ZIAGEN [Concomitant]
     Indication: HIV TEST POSITIVE
     Route: 048
     Dates: start: 20130716, end: 20130716
  7. DIAMOX [Concomitant]
     Dates: start: 20130705
  8. FOLINATE DE CALCIUM [Concomitant]
     Route: 048
     Dates: start: 20130705, end: 20130716
  9. EPIVIR [Concomitant]
     Indication: HIV TEST POSITIVE
     Route: 048
  10. CERNEVIT [Concomitant]
     Dates: start: 20130702
  11. SOLUMEDROL [Concomitant]
     Dosage: 60 MG
     Dates: start: 20130702, end: 20130716
  12. CERUMENOL [Concomitant]
     Dates: start: 20130701
  13. FUNGIZONE [Concomitant]
     Dates: start: 20130626
  14. PARACETAMOL [Concomitant]
     Dates: start: 20130620
  15. ORACILLINE [Concomitant]
     Indication: STAPHYLOCOCCAL BACTERAEMIA
  16. KALETRA [Concomitant]
     Indication: HIV TEST POSITIVE
     Dosage: 2 DF
     Dates: start: 20130625, end: 20130716

REACTIONS (3)
  - Anaemia [Fatal]
  - Thrombocytopenia [Fatal]
  - Leukopenia [Fatal]
